FAERS Safety Report 7038579-6 (Version None)
Quarter: 2010Q4

REPORT INFORMATION
  Report Type: 
  Country: None (occurrence: None)
  Receive Date: 20101011
  Receipt Date: 20100803
  Transmission Date: 20110411
  Serious: Yes (Other)
  Sender: FDA-Public Use
  Company Number: US-PFIZER INC-2010097954

PATIENT
  Age: 30 Year
  Sex: Female
  Weight: 90.703 kg

DRUGS (3)
  1. GABAPENTIN [Suspect]
  2. DEPAKOTE [Concomitant]
     Dosage: UNK
  3. VALIUM [Concomitant]
     Dosage: UNK

REACTIONS (3)
  - CONVULSION [None]
  - PYREXIA [None]
  - RASH [None]
